FAERS Safety Report 6681640-6 (Version None)
Quarter: 2010Q2

REPORT INFORMATION
  Report Type: 
  Country: None (occurrence: None)
  Receive Date: 20100414
  Receipt Date: 20100413
  Transmission Date: 20101027
  Serious: Yes (Other)
  Sender: FDA-Public Use
  Company Number: GXKR2010DE04130

PATIENT
  Age: 82 Year
  Sex: Female

DRUGS (1)
  1. CEFUHEXAL (NGX) [Suspect]
     Dosage: 250 MG, BID
     Route: 048

REACTIONS (1)
  - EPILEPSY [None]
